FAERS Safety Report 20041072 (Version 2)
Quarter: 2021Q4

REPORT INFORMATION
  Report Type: Spontaneous
  Country: US (occurrence: US)
  Receive Date: 20211107
  Receipt Date: 20211114
  Transmission Date: 20220303
  Serious: No
  Sender: FDA-Public Use
  Company Number: US-ELI_LILLY_AND_COMPANY-US202111001267

PATIENT
  Sex: Female
  Weight: 90.718 kg

DRUGS (3)
  1. TADALAFIL [Suspect]
     Active Substance: TADALAFIL
     Indication: Pulmonary arterial hypertension
     Dosage: UNK UNK, UNKNOWN
     Route: 065
  2. TYVASO [Suspect]
     Active Substance: TREPROSTINIL
     Indication: Pulmonary arterial hypertension
     Dosage: 3-12 BREATHS,QID
     Route: 055
     Dates: start: 20210903
  3. AMLODIPINE [Concomitant]
     Active Substance: AMLODIPINE BESYLATE
     Indication: Product used for unknown indication

REACTIONS (7)
  - Anxiety [Unknown]
  - Feeling jittery [Unknown]
  - Swelling [Recovering/Resolving]
  - Urticaria [Recovered/Resolved]
  - Dyspnoea exertional [Unknown]
  - Dizziness [Unknown]
  - Chest discomfort [Unknown]
